FAERS Safety Report 15967112 (Version 1)
Quarter: 2019Q1

REPORT INFORMATION
  Report Type: Spontaneous
  Country: JP (occurrence: JP)
  Receive Date: 20190215
  Receipt Date: 20190215
  Transmission Date: 20190418
  Serious: Yes (Death, Other)
  Sender: FDA-Public Use
  Company Number: JP-SA-2019SA042018

PATIENT
  Age: 79 Year
  Sex: Male

DRUGS (4)
  1. MABCAMPATH [Suspect]
     Active Substance: ALEMTUZUMAB
     Dosage: 10 MG
     Route: 041
     Dates: start: 20190206
  2. MABCAMPATH [Suspect]
     Active Substance: ALEMTUZUMAB
     Dosage: AT AN INCREASED DOSE OF 30 MG
     Route: 041
     Dates: start: 20190209, end: 20190209
  3. MABCAMPATH [Suspect]
     Active Substance: ALEMTUZUMAB
     Dosage: AT AN INCREASED DOSE OF 30 MG
     Route: 041
     Dates: start: 20190207
  4. MABCAMPATH [Suspect]
     Active Substance: ALEMTUZUMAB
     Indication: CHRONIC LYMPHOCYTIC LEUKAEMIA
     Dosage: 3 MG
     Route: 041
     Dates: start: 20190205

REACTIONS (1)
  - Death [Fatal]

NARRATIVE: CASE EVENT DATE: 20190209
